FAERS Safety Report 5331251-X (Version None)
Quarter: 2007Q2

REPORT INFORMATION
  Report Type: 
  Country: None (occurrence: None)
  Receive Date: 20070301
  Receipt Date: 20060203
  Transmission Date: 20071010
  Serious: Yes (Other)
  Sender: FDA-Public Use
  Company Number: 200600434

PATIENT
  Age: 79 Year
  Sex: Female

DRUGS (2)
  1. ACULAR [Suspect]
     Indication: EYE PAIN
     Dosage: 1 GTT, QID, OPHTHALMIC
     Route: 047
     Dates: start: 20060103, end: 20060113
  2. MURO [Concomitant]

REACTIONS (2)
  - CORNEAL PERFORATION [None]
  - FLAT ANTERIOR CHAMBER OF EYE [None]
